FAERS Safety Report 18529544 (Version 2)
Quarter: 2021Q1

REPORT INFORMATION
  Report Type: Spontaneous
  Country: US (occurrence: US)
  Receive Date: 20201121
  Receipt Date: 20210115
  Transmission Date: 20210419
  Serious: No
  Sender: FDA-Public Use
  Company Number: US-CELGENEUS-USA-20201104085

PATIENT
  Sex: Male
  Weight: 86.26 kg

DRUGS (2)
  1. REBLOZYL [Suspect]
     Active Substance: LUSPATERCEPT-AAMT
     Indication: OFF LABEL USE
  2. REBLOZYL [Suspect]
     Active Substance: LUSPATERCEPT-AAMT
     Indication: HAEMOGLOBIN DECREASED
     Dosage: AROUND THE SECOND OR 4TH PERIOD,?SHOT ON ARM
     Route: 058
     Dates: start: 20200613, end: 20201113

REACTIONS (6)
  - Feeling abnormal [Unknown]
  - Dizziness [Unknown]
  - Blood test abnormal [Unknown]
  - Feeding disorder [Unknown]
  - Dehydration [Unknown]
  - Blood pressure decreased [Unknown]

NARRATIVE: CASE EVENT DATE: 2020
